FAERS Safety Report 13006072 (Version 1)
Quarter: 2016Q4

REPORT INFORMATION
  Report Type: Spontaneous
  Country: US (occurrence: US)
  Receive Date: 20161206
  Receipt Date: 20161206
  Transmission Date: 20170207
  Serious: No
  Sender: FDA-Public Use
  Company Number: None

PATIENT

DRUGS (1)
  1. CAL STAT PLUS ANTISEPTIC [Suspect]
     Active Substance: ISOPROPYL ALCOHOL

REACTIONS (2)
  - Drug dispensing error [None]
  - Product barcode issue [None]
